FAERS Safety Report 10012622 (Version 1)
Quarter: 2014Q1

REPORT INFORMATION
  Report Type: Spontaneous
  Country: JP (occurrence: JP)
  Receive Date: 20140314
  Receipt Date: 20140314
  Transmission Date: 20141002
  Serious: Yes (Life-Threatening, Hospitalization, Other)
  Sender: FDA-Public Use
  Company Number: JP-ROXANE LABORATORIES, INC.-2014-RO-00410RO

PATIENT
  Age: 82 Year
  Sex: Female

DRUGS (3)
  1. METHOTREXATE [Suspect]
     Indication: RHEUMATOID ARTHRITIS
     Route: 065
  2. LOXOPROFEN SODIUM HYDRATE [Suspect]
     Indication: RHEUMATOID ARTHRITIS
     Dosage: 180 MG
     Route: 065
  3. PREDNISOLONE [Suspect]
     Indication: RHEUMATOID ARTHRITIS
     Route: 065

REACTIONS (10)
  - Gastrointestinal mucosal necrosis [Unknown]
  - Constipation [Recovered/Resolved]
  - Anaemia [Unknown]
  - Stomatitis [Unknown]
  - Pleural effusion [Unknown]
  - Gastroenteritis staphylococcal [Unknown]
  - Pancytopenia [Unknown]
  - Renal injury [Unknown]
  - Oesophageal stenosis [Unknown]
  - Large intestinal stenosis [Unknown]
